FAERS Safety Report 4576418-3 (Version None)
Quarter: 2005Q1

REPORT INFORMATION
  Report Type: 
  Country: None (occurrence: None)
  Receive Date: 20050207
  Receipt Date: 20050131
  Transmission Date: 20050727
  Serious: Yes (Death)
  Sender: FDA-Public Use
  Company Number: 2003-09-1299

PATIENT
  Age: 91 Year
  Sex: Female

DRUGS (5)
  1. CELESTONE [Suspect]
     Indication: OSTEOARTHRITIS
     Dosage: 1 ML INTRAMUSCULAR
     Route: 030
     Dates: start: 20020416, end: 20020416
  2. XYLOCAINE [Suspect]
     Indication: OSTEOARTHRITIS
     Dosage: 4 MG INTRAMUSCULAR
     Route: 030
     Dates: start: 20020416, end: 20020416
  3. DETRUSITOL (TOLTERODINE TARTRATE) [Concomitant]
  4. MODURETIC MITE [Concomitant]
  5. CELEBREX [Suspect]
     Indication: OSTEOARTHRITIS
     Dosage: 100-200 MG /AM ORAL
     Route: 048
     Dates: start: 20010516, end: 20020528

REACTIONS (2)
  - DUODENAL ULCER HAEMORRHAGE [None]
  - POST PROCEDURAL COMPLICATION [None]
